FAERS Safety Report 8502734-6 (Version None)
Quarter: 2012Q3

REPORT INFORMATION
  Report Type: 
  Country: None (occurrence: None)
  Receive Date: 20120706
  Receipt Date: 20120706
  Transmission Date: 20120928
  Serious: Yes (Hospitalization, Other)
  Sender: FDA-Public Use
  Company Number: None

PATIENT
  Age: 57 Year

DRUGS (2)
  1. LISINOPRIL [Suspect]
     Indication: HYPERTENSION
     Dosage: 40MG ONCE DAILY PO
     Route: 048
  2. LISINOPRIL [Suspect]
     Indication: BLOOD CHOLESTEROL
     Dosage: 40MG ONCE DAILY PO
     Route: 048

REACTIONS (3)
  - SWELLING FACE [None]
  - TONGUE BITING [None]
  - SWOLLEN TONGUE [None]
